FAERS Safety Report 5684729-3 (Version None)
Quarter: 2008Q1

REPORT INFORMATION
  Report Type: 
  Country: None (occurrence: None)
  Receive Date: 20080328
  Receipt Date: 19851107
  Transmission Date: 20080703
  Serious: Yes (Death, Other)
  Sender: FDA-Public Use
  Company Number: FR-ROCHE-6373

PATIENT
  Age: 56 Year
  Sex: Male

DRUGS (4)
  1. TICLID [Suspect]
     Indication: DRUG USE FOR UNKNOWN INDICATION
     Route: 048
     Dates: start: 19850503, end: 19850517
  2. NIFEDIPINE [Concomitant]
     Dates: start: 19850503
  3. ISOSORBIDE DINITRATE [Concomitant]
     Dates: start: 19850503
  4. RANITIDINE [Concomitant]

REACTIONS (13)
  - APHASIA [None]
  - DEATH [None]
  - DYSARTHRIA [None]
  - GINGIVAL BLEEDING [None]
  - HAEMATURIA [None]
  - HAEMOLYTIC ANAEMIA [None]
  - HEMIPLEGIA [None]
  - LIVER FUNCTION TEST ABNORMAL [None]
  - ORAL DISORDER [None]
  - PARAESTHESIA [None]
  - PARANASAL SINUS DISCOMFORT [None]
  - THROMBOCYTOPENIA [None]
  - THROMBOTIC THROMBOCYTOPENIC PURPURA [None]
